FAERS Safety Report 6709174-0 (Version None)
Quarter: 2010Q2

REPORT INFORMATION
  Report Type: 
  Country: None (occurrence: None)
  Receive Date: 20100504
  Receipt Date: 20100422
  Transmission Date: 20101027
  Serious: Yes (Other)
  Sender: FDA-Public Use
  Company Number: US-SANOFI-AVENTIS-2010SA024019

PATIENT
  Age: 76 Year
  Sex: Male

DRUGS (1)
  1. AMBIEN [Suspect]
     Route: 048
     Dates: start: 20091201, end: 20100401

REACTIONS (12)
  - ABASIA [None]
  - ANGER [None]
  - ASTHENIA [None]
  - BALANCE DISORDER [None]
  - CONFUSIONAL STATE [None]
  - CONVULSION [None]
  - DISORIENTATION [None]
  - DRUG ADMINISTRATION ERROR [None]
  - DYSSTASIA [None]
  - HEART RATE INCREASED [None]
  - TRANSIENT ISCHAEMIC ATTACK [None]
  - TREMOR [None]
